FAERS Safety Report 7549217-8 (Version None)
Quarter: 2011Q2

REPORT INFORMATION
  Report Type: 
  Country: None (occurrence: None)
  Receive Date: 20110615
  Receipt Date: 20110603
  Transmission Date: 20111010
  Serious: Yes (Hospitalization)
  Sender: FDA-Public Use
  Company Number: PHHY2010BR87245

PATIENT
  Age: 64 Year
  Sex: Male
  Weight: 95 kg

DRUGS (13)
  1. PREDNESOL [Concomitant]
     Dosage: 20 MG, 4 TABLES/DAY
     Route: 048
     Dates: start: 20101030
  2. PREDNESOL [Concomitant]
     Dosage: 20 MG, TID
     Dates: start: 20101217
  3. FUROSEMIDE [Concomitant]
     Indication: SWELLING
     Dosage: 40 MG, 1-2 TABLETS DAILY
  4. FLUCONAZOLE [Concomitant]
     Indication: CANDIDIASIS
     Dosage: 150 MG, QD
     Dates: start: 20101030
  5. LEUCINE [Concomitant]
     Dosage: 300 UG, UNK
     Route: 058
  6. EPOETIN ALFA [Concomitant]
     Dosage: 40 IU, UNK
     Route: 058
  7. LEVOTHYROXINE SODIUM [Concomitant]
     Indication: THYROID DISORDER
     Route: 048
  8. OMEPRAZOLE [Concomitant]
     Dosage: 20 MG, BID
     Route: 048
  9. METOPROLOL SUCCINATE [Concomitant]
     Indication: HYPERTENSION
     Dosage: 25 MG, QD
  10. PREDNESOL [Concomitant]
     Dosage: 20 MG, TID
     Dates: start: 20101115
  11. PREDNESOL [Concomitant]
     Dosage: 20 MG, BID
     Dates: start: 20101205
  12. ACETAMINOPHEN AND CODEINE PHOSPHATE [Concomitant]
     Dosage: 30 MG, QID
     Route: 048
  13. EXJADE [Suspect]
     Indication: BLOOD DISORDER
     Dosage: 2500 MG, UNK
     Dates: start: 20101001

REACTIONS (5)
  - SPINAL CORD INJURY [None]
  - BONE PAIN [None]
  - DIARRHOEA [None]
  - VISION BLURRED [None]
  - DRUG ADMINISTRATION ERROR [None]
